FAERS Safety Report 23558286 (Version 1)
Quarter: 2024Q1

REPORT INFORMATION
  Report Type: Spontaneous
  Country: DE (occurrence: DE)
  Receive Date: 20240223
  Receipt Date: 20240223
  Transmission Date: 20240410
  Serious: Yes (Other)
  Sender: FDA-Public Use
  Company Number: DE-ASTELLAS-2023EU002066

PATIENT

DRUGS (21)
  1. BENDAMUSTINE HYDROCHLORIDE [Suspect]
     Active Substance: BENDAMUSTINE HYDROCHLORIDE
     Indication: Plasma cell myeloma refractory
     Dosage: TIME INTERVAL: CYCLICAL: UNK UNK, CYCLIC (AS A PART OF MOST RECENT LINE TREATMENT)
     Route: 042
     Dates: start: 20220801, end: 20230620
  2. POMALIDOMIDE [Concomitant]
     Active Substance: POMALIDOMIDE
     Indication: Plasma cell myeloma refractory
     Dosage: UNK UNK, UNKNOWN FREQ. (AS A PART OF FIFTH LINE TREATMENT)
     Route: 065
     Dates: start: 20180901, end: 20190901
  3. POMALIDOMIDE [Concomitant]
     Active Substance: POMALIDOMIDE
     Indication: Plasma cell myeloma refractory
     Dosage: UNK UNK, UNKNOWN FREQ. (AS A PART OF FIFTH LINE TREATMENT)
     Route: 065
     Dates: start: 20200701, end: 20210101
  4. DEXAMETHASONE [Concomitant]
     Active Substance: DEXAMETHASONE
     Indication: Plasma cell myeloma refractory
     Dosage: UNK UNK, UNKNOWN FREQ. (AS A PART OF THIRD LINE TREATMENT)
     Route: 065
     Dates: start: 20171001, end: 20180801
  5. DEXAMETHASONE [Suspect]
     Active Substance: DEXAMETHASONE
     Indication: Plasma cell myeloma refractory
     Dosage: (AS A PART OF FIRST LINE TREATMENT)
     Route: 065
     Dates: start: 20150101, end: 20171001
  6. DEXAMETHASONE [Suspect]
     Active Substance: DEXAMETHASONE
     Indication: Plasma cell myeloma refractory
     Dosage: (AS A PART OF FIRST LINE TREATMENT)
     Route: 065
     Dates: start: 20140301, end: 20141101
  7. DEXAMETHASONE [Suspect]
     Active Substance: DEXAMETHASONE
     Indication: Plasma cell myeloma refractory
     Dosage: (AS A PART OF FIRST LINE TREATMENT)
     Route: 065
     Dates: start: 20171001, end: 201808
  8. DEXAMETHASONE [Suspect]
     Active Substance: DEXAMETHASONE
     Indication: Plasma cell myeloma refractory
     Dosage: (AS A PART OF FIRST LINE TREATMENT)
     Route: 065
     Dates: start: 20180901, end: 20190901
  9. DEXAMETHASONE [Suspect]
     Active Substance: DEXAMETHASONE
     Indication: Plasma cell myeloma refractory
     Dosage: (AS A PART OF FIRST LINE TREATMENT)
     Route: 065
     Dates: start: 20210101, end: 202205
  10. DEXAMETHASONE [Suspect]
     Active Substance: DEXAMETHASONE
     Indication: Plasma cell myeloma refractory
     Dosage: UNK UNK, UNKNOWN FREQ. (AS A PART OF FIFTH LINE TREATMENT)
     Route: 065
     Dates: start: 20200701, end: 20210101
  11. ELOTUZUMAB [Concomitant]
     Active Substance: ELOTUZUMAB
     Indication: Plasma cell myeloma refractory
     Dosage: UNK UNK, UNKNOWN FREQ. (AS A PART OF FIFTH LINE TREATMENT)
     Route: 065
     Dates: start: 20200701, end: 20210101
  12. DOXORUBICIN HYDROCHLORIDE [Suspect]
     Active Substance: DOXORUBICIN HYDROCHLORIDE
     Indication: Plasma cell myeloma refractory
     Dosage: UNK UNK, UNKNOWN FREQ. (AS A PART OF FIRST LINE TREATMENT)
     Route: 065
     Dates: start: 20140301, end: 20141101
  13. LENALIDOMIDE [Suspect]
     Active Substance: LENALIDOMIDE
     Indication: Plasma cell myeloma refractory
     Dosage: UNK UNK, UNKNOWN FREQ. (AS A PART OF SECOND LINE TREATMENT)
     Route: 065
     Dates: start: 20150101, end: 20171001
  14. BORTEZOMIB [Suspect]
     Active Substance: BORTEZOMIB
     Indication: Plasma cell myeloma refractory
     Dosage: UNK UNK, UNKNOWN FREQ. (AS A PART OF THIRD LINE TREATMENT)
     Route: 065
     Dates: start: 20140301, end: 20141101
  15. BORTEZOMIB [Suspect]
     Active Substance: BORTEZOMIB
     Indication: Plasma cell myeloma refractory
     Dosage: UNK UNK, UNKNOWN FREQ. (AS A PART OF THIRD LINE TREATMENT)
     Route: 065
     Dates: start: 20171001, end: 20180801
  16. CARFILZOMIB [Concomitant]
     Active Substance: CARFILZOMIB
     Indication: Plasma cell myeloma refractory
     Dosage: UNK UNK, UNKNOWN FREQ. (AS A PART OF SIXTH LINE TREATMENT)
     Route: 065
     Dates: start: 20210101, end: 20220501
  17. DARATUMUMAB [Suspect]
     Active Substance: DARATUMUMAB
     Indication: Plasma cell myeloma refractory
     Dosage: UNK UNK, UNKNOWN FREQ. (AS A PART OF THIRD LINE TREATMENT)
     Route: 065
     Dates: start: 20171001, end: 20180801
  18. BLENREP [Concomitant]
     Active Substance: BELANTAMAB MAFODOTIN-BLMF
     Indication: Malignant neoplasm progression
     Dosage: UNK UNK, UNKNOWN FREQ. (05-AUG-202)
     Route: 065
  19. BLENREP [Concomitant]
     Active Substance: BELANTAMAB MAFODOTIN-BLMF
     Indication: Malignant neoplasm progression
     Route: 065
  20. POMALIDOMIDE [Suspect]
     Active Substance: POMALIDOMIDE
     Indication: Plasma cell myeloma refractory
     Dosage: UNK UNK, UNKNOWN FREQ. (AS A PART OF FOURTH LINE TREATMENT)
     Route: 065
     Dates: start: 20200101, end: 20210101
  21. POMALIDOMIDE [Suspect]
     Active Substance: POMALIDOMIDE
     Indication: Plasma cell myeloma refractory
     Dosage: UNK UNK, UNKNOWN FREQ. (AS A PART OF FOURTH LINE TREATMENT)
     Route: 065
     Dates: start: 20180901, end: 20190901

REACTIONS (1)
  - Malignant neoplasm progression [Unknown]
